FAERS Safety Report 10016589 (Version 2)
Quarter: 2014Q2

REPORT INFORMATION
  Report Type: Report from Study
  Country: JP (occurrence: JP)
  Receive Date: 20140317
  Receipt Date: 20140422
  Transmission Date: 20141212
  Serious: Yes (Hospitalization)
  Sender: FDA-Public Use
  Company Number: JP-B.I. PHARMACEUTICALS,INC./RIDGEFIELD-2014-BI-10797NB

PATIENT
  Age: 85 Year
  Sex: Female
  Weight: 45 kg

DRUGS (7)
  1. PRADAXA [Suspect]
     Indication: CEREBROVASCULAR ACCIDENT PROPHYLAXIS
     Dosage: 220 MG
     Route: 048
     Dates: start: 20120704, end: 20121216
  2. PRADAXA [Suspect]
     Dosage: 220 MG
     Route: 048
     Dates: start: 20121219
  3. ALFAROL (ALFACALCIDOL) [Concomitant]
     Dosage: 1 MCG
     Route: 048
  4. LIPITOR (ATORVASTATIN CALCIUM HYDRATE) [Concomitant]
     Dosage: 10 MG
     Route: 048
  5. IRBETAN (IRBESARTAN) [Concomitant]
     Dosage: 50 MG
     Route: 048
  6. BETANIS (MIRABEGRON) [Concomitant]
     Dosage: 50 MG
     Route: 048
  7. MUCOSOLVAN L (AMBROXOL HYDROCHLORIDE) [Concomitant]
     Dosage: 45 MG
     Route: 048

REACTIONS (1)
  - Colon cancer [Recovered/Resolved]
